FAERS Safety Report 14239819 (Version 3)
Quarter: 2018Q1

REPORT INFORMATION
  Report Type: Report from Study
  Country: US (occurrence: US)
  Receive Date: 20171130
  Receipt Date: 20180109
  Transmission Date: 20180508
  Serious: Yes (Hospitalization)
  Sender: FDA-Public Use
  Company Number: US-BAYER-2017-206100

PATIENT
  Age: 65 Year
  Sex: Male

DRUGS (2)
  1. NEXAVAR [Suspect]
     Active Substance: SORAFENIB
     Indication: HEPATOCELLULAR CARCINOMA
     Dosage: 200 MG, BID
     Route: 048
     Dates: start: 20171023, end: 20171115
  2. NEXAVAR [Suspect]
     Active Substance: SORAFENIB
     Indication: HEPATOCELLULAR CARCINOMA
     Dosage: 200 MG, DAILY
     Route: 048
     Dates: start: 20171130

REACTIONS (10)
  - Off label use [None]
  - Muscle fatigue [None]
  - Adverse reaction [None]
  - Musculoskeletal stiffness [None]
  - Gastritis [Recovering/Resolving]
  - Fatigue [Not Recovered/Not Resolved]
  - Decreased appetite [None]
  - Eating disorder [None]
  - Hypertension [None]
  - Influenza [Recovering/Resolving]

NARRATIVE: CASE EVENT DATE: 2017
